FAERS Safety Report 9870127 (Version 1)
Quarter: 2014Q1

REPORT INFORMATION
  Report Type: Spontaneous
  Country: US (occurrence: None)
  Receive Date: 20140203
  Receipt Date: 20140203
  Transmission Date: 20141002
  Serious: Yes (Death)
  Sender: FDA-Public Use
  Company Number: VAL_02937_2014

PATIENT
  Age: 50 Year
  Sex: Male

DRUGS (2)
  1. CARBAMAZEPINE [Suspect]
     Indication: PRODUCT USED FOR UNKNOWN INDICATION
     Dosage: 24 GM 1X [NOT THE PRESCRIVED DOSE]?
     Route: 048
     Dates: start: 2012, end: 2012
  2. CLOMIPRAMINE [Suspect]
     Indication: PRODUCT USED FOR UNKNOWN INDICATION
     Dosage: NOT THE PRESRIED DOSE
     Dates: start: 2012, end: 2012

REACTIONS (11)
  - Completed suicide [None]
  - Unresponsive to stimuli [None]
  - Blood glucose increased [None]
  - Convulsion [None]
  - Hypotension [None]
  - Pupil fixed [None]
  - Gastrointestinal sounds abnormal [None]
  - Pulmonary oedema [None]
  - Cerebral infarction [None]
  - Bezoar [None]
  - Toxicity to various agents [None]
